FAERS Safety Report 9249681 (Version 2)
Quarter: 2013Q3

REPORT INFORMATION
  Report Type: Spontaneous
  Country: US (occurrence: US)
  Receive Date: 20130423
  Receipt Date: 20130717
  Transmission Date: 20140515
  Serious: Yes (Other)
  Sender: FDA-Public Use
  Company Number: US-BRISTOL-MYERS SQUIBB COMPANY-17309055

PATIENT
  Age: 79 Year
  Sex: Female

DRUGS (1)
  1. YERVOY [Suspect]
     Indication: MALIGNANT MELANOMA
     Dosage: DATE OF LAST INF:15JAN2013

REACTIONS (4)
  - Metastases to central nervous system [Unknown]
  - Duodenal ulcer [Unknown]
  - Oropharyngeal pain [Unknown]
  - Malaise [Unknown]
